FAERS Safety Report 15866244 (Version 1)
Quarter: 2019Q1

REPORT INFORMATION
  Report Type: Spontaneous
  Country: US (occurrence: US)
  Receive Date: 20190125
  Receipt Date: 20190125
  Transmission Date: 20190417
  Serious: No
  Sender: FDA-Public Use
  Company Number: US-PFIZER INC-2019032146

PATIENT
  Age: 34 Year
  Sex: Female

DRUGS (2)
  1. INOTUZUMAB [Suspect]
     Active Substance: INOTUZUMAB OZOGAMICIN
     Dosage: UNK
  2. BOSUTINIB [Suspect]
     Active Substance: BOSUTINIB
     Dosage: UNK

REACTIONS (1)
  - Neoplasm progression [Unknown]
